FAERS Safety Report 6848003-1 (Version None)
Quarter: 2010Q3

REPORT INFORMATION
  Report Type: 
  Country: None (occurrence: None)
  Receive Date: 20100716
  Receipt Date: 20100712
  Transmission Date: 20110219
  Serious: Yes (Other)
  Sender: FDA-Public Use
  Company Number: A0869741A

PATIENT
  Age: 13 Year
  Sex: Female

DRUGS (2)
  1. DUAC [Suspect]
     Indication: ACNE
     Route: 061
     Dates: start: 20100630, end: 20100630
  2. NO CONCURRENT MEDICATION [Concomitant]

REACTIONS (7)
  - ANXIETY [None]
  - CLAUSTROPHOBIA [None]
  - DYSPNOEA [None]
  - INSOMNIA [None]
  - PANIC ATTACK [None]
  - PSYCHOTIC DISORDER [None]
  - SENSORY DISTURBANCE [None]
